FAERS Safety Report 8806817 (Version 1)
Quarter: 2012Q4

REPORT INFORMATION
  Report Type: 
  Country: HR (occurrence: HR)
  Receive Date: 20120925
  Receipt Date: 20120925
  Transmission Date: 20130627
  Serious: Yes (Hospitalization)
  Sender: FDA-Public Use
  Company Number: HR-ELI_LILLY_AND_COMPANY-HR201205010018

PATIENT
  Age: 47 Year
  Sex: Female

DRUGS (6)
  1. CYMBALTA [Suspect]
     Dosage: 60 mg, qd
     Dates: start: 20120109, end: 20120401
  2. CYMBALTA [Suspect]
     Dosage: 60 mg, each morning
     Dates: start: 20120402
  3. CYMBALTA [Suspect]
     Dosage: 30 mg, each evening
     Dates: start: 20120402
  4. CYMBALTA [Suspect]
     Dosage: 60 mg, UNK
     Dates: end: 20120429
  5. SANVAL [Concomitant]
     Dosage: 10 mg, UNK
     Dates: start: 20120109, end: 20120430
  6. RIVOTRIL [Concomitant]
     Dosage: 0.5 mg, UNK
     Dates: start: 20120109, end: 20120430

REACTIONS (3)
  - Conversion disorder [Recovered/Resolved]
  - Depression [Recovered/Resolved]
  - Hyperhidrosis [Recovered/Resolved]
